FAERS Safety Report 11532322 (Version 2)
Quarter: 2015Q3

REPORT INFORMATION
  Report Type: Spontaneous
  Country: US (occurrence: US)
  Receive Date: 20150921
  Receipt Date: 20150922
  Transmission Date: 20151125
  Serious: No
  Sender: FDA-Public Use
  Company Number: US-PFIZER INC-2015302783

PATIENT
  Age: 64 Year
  Sex: Female
  Weight: 95.2 kg

DRUGS (1)
  1. IBRANCE [Suspect]
     Active Substance: PALBOCICLIB
     Indication: BREAST CANCER
     Dosage: 10 MG, 1X/DAY
     Dates: start: 201504, end: 201508

REACTIONS (2)
  - Disease progression [Unknown]
  - Breast cancer [Unknown]

NARRATIVE: CASE EVENT DATE: 20150818
